FAERS Safety Report 16360611 (Version 1)
Quarter: 2019Q2

REPORT INFORMATION
  Report Type: Spontaneous
  Country: GB (occurrence: GB)
  Receive Date: 20190528
  Receipt Date: 20190528
  Transmission Date: 20190711
  Serious: Yes (Hospitalization)
  Sender: FDA-Public Use
  Company Number: GB-ACCORD-129789

PATIENT
  Age: 83 Year
  Sex: Male

DRUGS (17)
  1. DORZOLAMIDE [Concomitant]
     Active Substance: DORZOLAMIDE
     Dosage: 20MG/ML, LEFT EYE TWICE DAILY
     Route: 047
  2. RAMIPRIL. [Concomitant]
     Active Substance: RAMIPRIL
     Route: 048
  3. FESOTERODINE [Suspect]
     Active Substance: FESOTERODINE
     Indication: PRODUCT USED FOR UNKNOWN INDICATION
     Route: 048
     Dates: end: 20181204
  4. METFORMIN [Concomitant]
     Active Substance: METFORMIN HYDROCHLORIDE
     Route: 048
  5. TAMSULOSIN/TAMSULOSIN HYDROCHLORIDE [Concomitant]
     Route: 048
  6. CARBOMER [Concomitant]
     Active Substance: CARBOMER
     Dosage: BOTH EYES
  7. PIOGLITAZONE/PIOGLITAZONE HYDROCHLORIDE [Suspect]
     Active Substance: PIOGLITAZONE HYDROCHLORIDE
     Indication: PRODUCT USED FOR UNKNOWN INDICATION
     Route: 048
     Dates: end: 20181204
  8. HYLO-FORTE [Concomitant]
     Active Substance: HYALURONATE SODIUM
     Dosage: BOTH EYES
     Route: 047
  9. IBUPROFEN. [Concomitant]
     Active Substance: IBUPROFEN
     Dosage: THREE TIMES DAILY
     Route: 061
  10. WARFARIN [Concomitant]
     Active Substance: WARFARIN
     Route: 048
  11. AMLODIPINE [Concomitant]
     Active Substance: AMLODIPINE BESYLATE
     Route: 048
     Dates: end: 20181204
  12. TIMOLOL. [Concomitant]
     Active Substance: TIMOLOL
     Dosage: 5MG/ML, LEFT EYE TWICE DAILY
     Route: 047
  13. TRAVOPROST. [Concomitant]
     Active Substance: TRAVOPROST
     Dosage: 40MICROGRAMS/ML  LEFT EYE ONCE NIGHTLY
     Route: 047
  14. GLICLAZIDE [Concomitant]
     Active Substance: GLICLAZIDE
     Route: 048
  15. ATORVASTATIN [Concomitant]
     Active Substance: ATORVASTATIN
     Dosage: AT NIGHT
     Route: 048
  16. COCODAMOL [Concomitant]
     Active Substance: ACETAMINOPHEN\CODEINE PHOSPHATE
     Dosage: 1-2 FOUR TIMES DAILY, 30MG/500MG
     Route: 048
  17. BENDROFLUMETHIAZIDE [Concomitant]
     Active Substance: BENDROFLUMETHIAZIDE
     Route: 048

REACTIONS (3)
  - Delirium [Unknown]
  - Cardiac failure [Not Recovered/Not Resolved]
  - Constipation [Recovered/Resolved]

NARRATIVE: CASE EVENT DATE: 20181204
